FAERS Safety Report 7724916-3 (Version None)
Quarter: 2011Q3

REPORT INFORMATION
  Report Type: 
  Country: None (occurrence: None)
  Receive Date: 20110901
  Receipt Date: 20110818
  Transmission Date: 20111222
  Serious: Yes (Other)
  Sender: FDA-Public Use
  Company Number: US-JNJFOC-20110809736

PATIENT
  Age: 43 Year
  Sex: Female
  Weight: 86.18 kg

DRUGS (8)
  1. CYMBALTA [Concomitant]
     Indication: DEPRESSION
     Dosage: 3 ^EA^
     Route: 065
  2. ANTI-HYPERTENSIVES, UNSPECIFIED [Concomitant]
     Indication: HYPERTENSION
     Dosage: 1 ^EA^
     Route: 065
  3. WELLBUTRIN [Concomitant]
     Indication: DEPRESSION
     Dosage: 2 ^EA^
     Route: 065
  4. LISTERINE TOTAL CARE PLUS WHITENING [Suspect]
     Indication: TOBACCO USER
     Dosage: A LITTLE MORE THAN RECOMMENDED ON LABEL 1X IN EVENING
     Route: 048
     Dates: start: 20110805, end: 20110817
  5. LEVOTHYROXINE SODIUM [Concomitant]
     Indication: HYPOTHYROIDISM
     Dosage: 1 ^EA^ OVER A YEAR
     Route: 065
  6. DIURETIC [Concomitant]
     Indication: WEIGHT INCREASED
     Dosage: 1 ^EA^
     Route: 065
  7. METHADONE HCL [Concomitant]
     Indication: WITHDRAWAL SYNDROME
     Dosage: 1 ^EA^
     Route: 065
  8. MUSCLE RELAXANTS (NOS) [Concomitant]
     Indication: MUSCLE RELAXANT THERAPY
     Dosage: 2 ^EA^ 3-4 MONTHS
     Route: 065

REACTIONS (7)
  - GINGIVAL DISORDER [None]
  - GINGIVAL BLEEDING [None]
  - ACTIVITIES OF DAILY LIVING IMPAIRED [None]
  - GINGIVAL ERYTHEMA [None]
  - GINGIVAL PAIN [None]
  - ORAL DISCOMFORT [None]
  - INCORRECT DOSE ADMINISTERED [None]
